FAERS Safety Report 6473285-8 (Version None)
Quarter: 2009Q4

REPORT INFORMATION
  Report Type: 
  Country: None (occurrence: None)
  Receive Date: 20091204
  Receipt Date: 20081120
  Transmission Date: 20100525
  Serious: Yes (Hospitalization)
  Sender: FDA-Public Use
  Company Number: US-ELI_LILLY_AND_COMPANY-US200808004682

PATIENT
  Sex: Female
  Weight: 78.005 kg

DRUGS (3)
  1. BYETTA [Suspect]
     Indication: TYPE 2 DIABETES MELLITUS
     Dosage: UNK, UNKNOWN
     Route: 058
     Dates: start: 20070101
  2. BYETTA [Suspect]
     Dosage: 5 UG, 2/D
     Route: 058
     Dates: start: 20080719, end: 20080819
  3. BYETTA [Suspect]
     Dosage: 10 UG, 2/D
     Route: 058
     Dates: start: 20080820

REACTIONS (7)
  - ARTHRITIS [None]
  - BACK PAIN [None]
  - DYSPNOEA [None]
  - FEELING HOT [None]
  - MASS [None]
  - MUSCLE SPASMS [None]
  - PAIN [None]
